FAERS Safety Report 11804806 (Version 1)
Quarter: 2015Q4

REPORT INFORMATION
  Report Type: Spontaneous
  Country: US (occurrence: US)
  Receive Date: 20151205
  Receipt Date: 20151205
  Transmission Date: 20160305
  Serious: No
  Sender: FDA-Public Use
  Company Number: US-BAUSCH-BL-2014-007780

PATIENT
  Age: 66 Year
  Sex: Male

DRUGS (3)
  1. XENAZINE [Suspect]
     Active Substance: TETRABENAZINE
     Dosage: DOSE REDUCED
     Route: 048
     Dates: start: 201507
  2. XENAZINE [Suspect]
     Active Substance: TETRABENAZINE
     Indication: HUNTINGTON^S DISEASE
     Dosage: TWO TABLETS IN THE MORNING AND AFTERNOON AND ONE TABLET IN THE EVENING
     Route: 048
     Dates: start: 20141001
  3. XENAZINE [Suspect]
     Active Substance: TETRABENAZINE
     Route: 048
     Dates: start: 201410

REACTIONS (3)
  - Feeling abnormal [Recovering/Resolving]
  - Anxiety [Unknown]
  - Depression [Recovering/Resolving]

NARRATIVE: CASE EVENT DATE: 201410
